FAERS Safety Report 6319978-4 (Version None)
Quarter: 2009Q3

REPORT INFORMATION
  Report Type: 
  Country: None (occurrence: None)
  Receive Date: 20090822
  Receipt Date: 20081117
  Transmission Date: 20100115
  Serious: No
  Sender: FDA-Public Use
  Company Number: US-ABBOTT-08P-163-0481396-00

PATIENT
  Sex: Female
  Weight: 60.836 kg

DRUGS (5)
  1. NIASPAN [Suspect]
     Indication: DRUG USE FOR UNKNOWN INDICATION
     Route: 048
     Dates: start: 20080901
  2. NIASPAN [Suspect]
     Route: 048
     Dates: start: 20080801, end: 20080901
  3. SIMVASTATIN [Concomitant]
     Indication: BLOOD CHOLESTEROL
     Route: 048
  4. GENERIC AXID [Concomitant]
     Indication: GASTROOESOPHAGEAL REFLUX DISEASE
     Route: 048
  5. ESTRADIOL [Concomitant]
     Indication: HORMONE REPLACEMENT THERAPY

REACTIONS (1)
  - SINUS TACHYCARDIA [None]
